FAERS Safety Report 7225623-6 (Version None)
Quarter: 2011Q1

REPORT INFORMATION
  Report Type: 
  Country: None (occurrence: None)
  Receive Date: 20110113
  Receipt Date: 20101227
  Transmission Date: 20110831
  Serious: No
  Sender: FDA-Public Use
  Company Number: US-B.I. PHARMACEUTICALS,INC./RIDGEFIELD-2011-BP-00185BP

PATIENT
  Sex: Female

DRUGS (4)
  1. LORAZEPAM [Concomitant]
     Indication: SLEEP DISORDER
  2. PREMARIN [Concomitant]
     Indication: OOPHORECTOMY
  3. PRADAXA [Suspect]
     Indication: ATRIAL FIBRILLATION
     Dosage: 300 MG
     Route: 048
     Dates: start: 20101201
  4. BENADRYL [Concomitant]
     Indication: HYPERSENSITIVITY

REACTIONS (3)
  - BLEEDING TIME PROLONGED [None]
  - ABDOMINAL DISCOMFORT [None]
  - LACERATION [None]
